FAERS Safety Report 8230199-0 (Version None)
Quarter: 2012Q1

REPORT INFORMATION
  Report Type: 
  Country: None (occurrence: None)
  Receive Date: 20120321
  Receipt Date: 20120321
  Transmission Date: 20120608
  Serious: Yes (Other)
  Sender: FDA-Public Use
  Company Number: None

PATIENT
  Sex: Male

DRUGS (2)
  1. TRILEPTAL [Suspect]
     Dosage: 6.5ML 2X DAY
     Dates: start: 20120208
  2. TRILEPTAL [Suspect]
     Dosage: 6.5ML 2X DAY
     Dates: start: 20120103

REACTIONS (4)
  - CRYING [None]
  - THROAT IRRITATION [None]
  - ORAL DISCOMFORT [None]
  - PRODUCT QUALITY ISSUE [None]
